FAERS Safety Report 5656213-4 (Version None)
Quarter: 2008Q1

REPORT INFORMATION
  Report Type: 
  Country: None (occurrence: None)
  Receive Date: 20080305
  Receipt Date: 20080221
  Transmission Date: 20080703
  Serious: Yes (Hospitalization)
  Sender: FDA-Public Use
  Company Number: DSA_31506_2008

PATIENT
  Sex: Female

DRUGS (6)
  1. LORAZEPAM [Suspect]
     Dosage: (NOT THE PRESCRIBED AMOUNT. ORAL)
     Route: 048
     Dates: start: 20080221, end: 20080221
  2. ASS-RATIOPHARM (ASS-RATIOPHARM - ACETYLSALICYLIC ACID) 500 MG [Suspect]
     Dosage: (50000 MG 1X NOT THE PRESCRIBED AMOUNT.ORAL)
     Route: 048
     Dates: start: 20080221, end: 20080221
  3. DOXEPIN HCL [Suspect]
     Dosage: (NOT THE PRESCRIBED AMOUNT. ORAL)
     Route: 048
     Dates: start: 20080221, end: 20080221
  4. PARACETAMOL (PARACETAMOL) 500 MG [Suspect]
     Dosage: (10000 MG 1X NOT THE PRESCRIBED AMOUNT. ORAL)
     Route: 048
     Dates: start: 20080221, end: 20080221
  5. RISPERIDONE [Suspect]
     Dosage: 60 MG 1X NOT THE PRESCRIBED AMOUNT. ORAL)
     Route: 048
     Dates: start: 20080221, end: 20080221
  6. SINQUAN (SINQUAN - DOXEPIN HYDROCHLORIDE) (NOT SPECIFIED) [Suspect]
     Dosage: (NOT THE PRESCRIBED AMOUNT. ORAL)
     Route: 048
     Dates: start: 20080221, end: 20080221

REACTIONS (4)
  - COLONIC ATONY [None]
  - MULTIPLE DRUG OVERDOSE INTENTIONAL [None]
  - SUICIDE ATTEMPT [None]
  - TACHYCARDIA [None]
